FAERS Safety Report 4305033-1 (Version None)
Quarter: 2004Q1

REPORT INFORMATION
  Report Type: 
  Country: None (occurrence: None)
  Receive Date: 20040225
  Receipt Date: 20040225
  Transmission Date: 20041129
  Serious: Yes (Life-Threatening, Hospitalization)
  Sender: FDA-Public Use
  Company Number: None

PATIENT
  Age: 32 Year
  Sex: Female
  Weight: 72 kg

DRUGS (4)
  1. PROPOFOL [Suspect]
     Indication: COMA
     Dosage: 500 MG /KG/MIN IV CONT INFUSION
     Route: 042
     Dates: start: 20031023, end: 20031024
  2. CEFAZOLIN [Concomitant]
  3. DEXAMETHASONE [Concomitant]
  4. RANITIDINE [Concomitant]

REACTIONS (2)
  - AGITATION [None]
  - BLOOD PRESSURE DIASTOLIC DECREASED [None]
